FAERS Safety Report 13971532 (Version 1)
Quarter: 2017Q3

REPORT INFORMATION
  Report Type: Spontaneous
  Country: CA (occurrence: CA)
  Receive Date: 20170914
  Receipt Date: 20170914
  Transmission Date: 20171128
  Serious: Yes (Life-Threatening, Hospitalization)
  Sender: FDA-Public Use
  Company Number: CA-TEVA-806376USA

PATIENT
  Age: 69 Year
  Sex: Male

DRUGS (1)
  1. AMOXICILLIN. [Suspect]
     Active Substance: AMOXICILLIN
     Indication: PROPHYLAXIS
     Route: 065

REACTIONS (2)
  - Hypotension [Unknown]
  - Acute generalised exanthematous pustulosis [Recovered/Resolved]
